FAERS Safety Report 7912896-7 (Version None)
Quarter: 2011Q4

REPORT INFORMATION
  Report Type: 
  Country: None (occurrence: None)
  Receive Date: 20111114
  Receipt Date: 20111107
  Transmission Date: 20120403
  Serious: Yes (Hospitalization)
  Sender: FDA-Public Use
  Company Number: NL-PFIZER INC-2011272505

PATIENT
  Age: 44 Year
  Sex: Female

DRUGS (5)
  1. SULFASALAZINE [Concomitant]
     Dosage: 1500 MG, UNK
  2. ALPRAZOLAM [Concomitant]
     Dosage: 0.75 MG, UNK
  3. PARACETAMOL [Concomitant]
     Dosage: 500 MG, AS NEEDED
  4. CLINDAMYCIN HCL [Suspect]
     Indication: ERYSIPELAS
     Dosage: 150 MG, UNK
     Dates: start: 20111005, end: 20111014
  5. LIORESAL [Concomitant]
     Dosage: 10 MG, UNK

REACTIONS (3)
  - HYPOVOLAEMIC SHOCK [None]
  - TOXIC SKIN ERUPTION [None]
  - PYREXIA [None]
